FAERS Safety Report 8555691-0 (Version None)
Quarter: 2012Q3

REPORT INFORMATION
  Report Type: 
  Country: None (occurrence: None)
  Receive Date: 20120801
  Receipt Date: 20120726
  Transmission Date: 20120928
  Serious: Yes (Hospitalization, Other)
  Sender: FDA-Public Use
  Company Number: CA-AMGEN-CANSP2012045176

PATIENT
  Age: 67 Year
  Sex: Male
  Weight: 81.6 kg

DRUGS (9)
  1. CYCLOPHOSPHAMIDE [Concomitant]
     Indication: CHRONIC LYMPHOCYTIC LEUKAEMIA
     Dosage: UNK
     Dates: start: 20120711, end: 20120714
  2. ASPIRIN [Concomitant]
     Indication: CARDIAC DISORDER
     Dosage: 81 MG, UNK
     Route: 048
  3. METOPROLOL TARTRATE [Concomitant]
     Indication: HYPERTENSION
     Dosage: 25 MG, BID
     Route: 048
  4. DEXAMETHASONE [Concomitant]
     Indication: NAUSEA
     Dosage: 40 MG, BID
     Route: 048
     Dates: start: 20120712, end: 20120714
  5. NEULASTA [Suspect]
     Indication: NEUTROPENIA
     Dosage: 6 MG, ONE TIME DOSE
     Route: 058
     Dates: start: 20120715, end: 20120715
  6. RITUXAN [Concomitant]
     Indication: CHRONIC LYMPHOCYTIC LEUKAEMIA
     Dosage: UNK
     Dates: start: 20120711, end: 20120714
  7. ALLOPURINOL [Concomitant]
     Indication: PROPHYLAXIS
     Dosage: 300 MG, QD
     Route: 048
     Dates: start: 20120710
  8. EZETIMIBE [Concomitant]
     Indication: HYPERLIPIDAEMIA
     Dosage: 10 MG, UNK
     Route: 048
  9. FLUDARA [Concomitant]
     Indication: CHRONIC LYMPHOCYTIC LEUKAEMIA
     Dosage: UNK
     Dates: start: 20120711, end: 20120714

REACTIONS (1)
  - PANCREATITIS ACUTE [None]
